FAERS Safety Report 8448078-2 (Version None)
Quarter: 2012Q2

REPORT INFORMATION
  Report Type: 
  Country: None (occurrence: None)
  Receive Date: 20120612
  Receipt Date: 20120531
  Transmission Date: 20120825
  Serious: Yes (Hospitalization, Other)
  Sender: FDA-Public Use
  Company Number: 2012SP029683

PATIENT
  Sex: Male

DRUGS (3)
  1. VICTRELIS [Suspect]
     Indication: HEPATITIS C
     Dates: start: 20120109
  2. RIBAVIRIN [Suspect]
     Indication: HEPATITIS C
     Dates: start: 20111213
  3. PEG-INTRON [Suspect]
     Indication: HEPATITIS C
     Dates: start: 20111213

REACTIONS (4)
  - STAPHYLOCOCCAL INFECTION [None]
  - JOINT EFFUSION [None]
  - MOVEMENT DISORDER [None]
  - OEDEMA PERIPHERAL [None]
